FAERS Safety Report 14173204 (Version 1)
Quarter: 2017Q4

REPORT INFORMATION
  Report Type: Spontaneous
  Country: FR (occurrence: FR)
  Receive Date: 20171109
  Receipt Date: 20171109
  Transmission Date: 20180321
  Serious: Yes (Hospitalization)
  Sender: FDA-Public Use
  Company Number: FR-EMD SERONO-8200846

PATIENT
  Age: 28 Year
  Sex: Female

DRUGS (4)
  1. GONAL-F [Suspect]
     Active Substance: FOLLITROPIN
     Route: 058
     Dates: start: 20170824, end: 20170825
  2. DECAPEPTYL (ACETATE) [Suspect]
     Active Substance: TRIPTORELIN ACETATE
     Indication: OOCYTE DONOR
     Dosage: POWDER AND SOLUTION FOR PREPARATION FOR INJECTION
     Route: 058
     Dates: start: 20170826, end: 20170826
  3. GONAL-F [Suspect]
     Active Substance: FOLLITROPIN
     Indication: OOCYTE DONOR
     Route: 058
     Dates: start: 20170818, end: 20170823
  4. ORGALUTRAN [Suspect]
     Active Substance: GANIRELIX ACETATE
     Indication: OOCYTE DONOR
     Dosage: 0.25 MG/0.5 ML
     Route: 058
     Dates: start: 20170824, end: 20170826

REACTIONS (1)
  - Peritoneal haemorrhage [Recovered/Resolved]

NARRATIVE: CASE EVENT DATE: 20170828
